FAERS Safety Report 9228207 (Version 2)
Quarter: 2013Q2

REPORT INFORMATION
  Report Type: Report from Study
  Country: FR (occurrence: FR)
  Receive Date: 20130412
  Receipt Date: 20130514
  Transmission Date: 20140414
  Serious: Yes (Death, Other)
  Sender: FDA-Public Use
  Company Number: FR-ROCHE-1209292

PATIENT
  Sex: 0

DRUGS (1)
  1. ALTEPLASE [Suspect]
     Indication: ACUTE MYOCARDIAL INFARCTION
     Dosage: 15 MG BOLUS, FOLLOWED BY 0.75 MG/KG
     Route: 042

REACTIONS (8)
  - Death [Fatal]
  - Myocardial ischaemia [Unknown]
  - Myocardial infarction [Unknown]
  - Cardiogenic shock [Unknown]
  - Cardiac failure [Unknown]
  - Ischaemic stroke [Unknown]
  - Haemorrhage [Unknown]
  - Myocardial ischaemia [Unknown]
